FAERS Safety Report 4824778-8 (Version None)
Quarter: 2005Q4

REPORT INFORMATION
  Report Type: 
  Country: None (occurrence: None)
  Receive Date: 20051014
  Receipt Date: 20050810
  Transmission Date: 20060501
  Serious: No
  Sender: FDA-Public Use
  Company Number: 2005SP002318

PATIENT
  Age: 73 Year
  Sex: Female
  Weight: 79.3795 kg

DRUGS (8)
  1. LUNESTA [Suspect]
     Indication: INSOMNIA
     Dosage: 1 MG;HS;ORAL
     Route: 048
     Dates: start: 20050802, end: 20050811
  2. LUNESTA [Suspect]
     Indication: SLEEP APNOEA SYNDROME
     Dosage: 1 MG;HS;ORAL
     Route: 048
     Dates: start: 20050802, end: 20050811
  3. HYDROCHLOROTHIAZIDE [Concomitant]
  4. KLOR-CON [Concomitant]
  5. LEVOTHROID [Concomitant]
  6. CALCIUM GLUCONATE [Concomitant]
  7. VITAMIN D [Concomitant]
  8. TRAMADOL HCL [Concomitant]

REACTIONS (3)
  - DRUG INEFFECTIVE [None]
  - INITIAL INSOMNIA [None]
  - SOMNOLENCE [None]
